FAERS Safety Report 16068444 (Version 10)
Quarter: 2020Q2

REPORT INFORMATION
  Report Type: Report from Study
  Country: US (occurrence: US)
  Receive Date: 20190313
  Receipt Date: 20200625
  Transmission Date: 20200713
  Serious: Yes (Death, Hospitalization, Other)
  Sender: FDA-Public Use
  Company Number: US-ACTELION-A-US2018-179948

PATIENT
  Age: 66 Year
  Sex: Male
  Weight: 77.1 kg

DRUGS (12)
  1. SILDENAFIL. [Concomitant]
     Active Substance: SILDENAFIL
  2. METHYLPREDISOLONE [Concomitant]
     Active Substance: METHYLPREDNISOLONE
     Dosage: UNK
     Dates: start: 20190221
  3. OXYGEN. [Concomitant]
     Active Substance: OXYGEN
     Dosage: 8-9 L
     Route: 055
  4. UPTRAVI [Suspect]
     Active Substance: SELEXIPAG
     Indication: PULMONARY ARTERIAL HYPERTENSION
     Dosage: 1600 MCG, BID
     Route: 048
     Dates: start: 20181101
  5. VANCOMYCIN [Concomitant]
     Active Substance: VANCOMYCIN
     Dosage: UNK
     Dates: start: 20190221
  6. OPSUMIT [Suspect]
     Active Substance: MACITENTAN
     Dosage: 10 MG, QD
     Route: 048
  7. GAMA [Concomitant]
     Dosage: UNK, Q1MONTH
  8. UPTRAVI [Suspect]
     Active Substance: SELEXIPAG
     Dosage: UNK
     Route: 048
  9. UPTRAVI [Suspect]
     Active Substance: SELEXIPAG
     Dosage: 1000 MCG
     Route: 048
  10. PIPERACILLIN AND TAZOBACTAM [Concomitant]
     Active Substance: PIPERACILLIN SODIUM\TAZOBACTAM SODIUM
     Dosage: UNK
     Dates: start: 20190221
  11. OXYGEN. [Concomitant]
     Active Substance: OXYGEN
     Dosage: 4-5 L
     Route: 055
  12. OPSUMIT [Suspect]
     Active Substance: MACITENTAN
     Indication: PULMONARY ARTERIAL HYPERTENSION
     Dosage: 10 MG, QD
     Route: 048
     Dates: start: 20180921

REACTIONS (34)
  - Pyrexia [Unknown]
  - Fibula fracture [Recovered/Resolved]
  - Oedema peripheral [Recovered/Resolved]
  - Dyspnoea exertional [Unknown]
  - Cough [Unknown]
  - Respiratory distress [Recovered/Resolved]
  - Oedema [Recovered/Resolved]
  - Malaise [Not Recovered/Not Resolved]
  - Pneumothorax [Recovered/Resolved]
  - Pleural effusion [Recovering/Resolving]
  - Nausea [Recovered/Resolved]
  - Oral herpes [Unknown]
  - Death [Fatal]
  - Oxygen saturation decreased [Recovered/Resolved]
  - Bacterial infection [Unknown]
  - Peripheral swelling [Unknown]
  - Fluid retention [Recovering/Resolving]
  - Weight increased [Recovered/Resolved]
  - Blood pressure increased [Unknown]
  - Immune system disorder [Unknown]
  - Pneumonia [Unknown]
  - Haemoptysis [Recovered/Resolved]
  - Wheezing [Recovered/Resolved]
  - Pulmonary hypertension [Unknown]
  - Chronic obstructive pulmonary disease [Recovered/Resolved]
  - Sputum discoloured [Unknown]
  - Productive cough [Recovered/Resolved]
  - Tooth infection [Unknown]
  - Skin laceration [Recovered/Resolved]
  - Pleurodesis [Unknown]
  - Palpitations [Unknown]
  - Dyspnoea [Recovered/Resolved]
  - Joint swelling [Unknown]
  - Emphysema [Unknown]

NARRATIVE: CASE EVENT DATE: 201809
